FAERS Safety Report 25422568 (Version 1)
Quarter: 2025Q2

REPORT INFORMATION
  Report Type: Spontaneous
  Country: US (occurrence: US)
  Receive Date: 20250611
  Receipt Date: 20250611
  Transmission Date: 20250716
  Serious: Yes (Death, Life-Threatening, Hospitalization, Other)
  Sender: AUROBINDO
  Company Number: US-MLMSERVICE-20250516-PI510886-00111-1

PATIENT
  Age: 6 Decade
  Sex: Male

DRUGS (2)
  1. SULFAMETHOXAZOLE\TRIMETHOPRIM [Suspect]
     Active Substance: SULFAMETHOXAZOLE\TRIMETHOPRIM
     Indication: Urinary tract infection
     Route: 065
  2. FUROSEMIDE [Suspect]
     Active Substance: FUROSEMIDE
     Indication: Pulmonary oedema
     Route: 065

REACTIONS (14)
  - Drug reaction with eosinophilia and systemic symptoms [Fatal]
  - Cardiopulmonary failure [Fatal]
  - Haemorrhage [Fatal]
  - Acute respiratory failure [Fatal]
  - Haemophagocytic lymphohistiocytosis [Unknown]
  - Pulmonary oedema [Unknown]
  - Aspartate aminotransferase increased [Unknown]
  - Herpes simplex reactivation [Unknown]
  - Hypotension [Unknown]
  - Alanine aminotransferase increased [Unknown]
  - Dysgeusia [Unknown]
  - Chills [Unknown]
  - Hyperhidrosis [Unknown]
  - Myalgia [Unknown]
